FAERS Safety Report 6700822-8 (Version None)
Quarter: 2010Q2

REPORT INFORMATION
  Report Type: 
  Country: None (occurrence: None)
  Receive Date: 20100428
  Receipt Date: 20100415
  Transmission Date: 20101027
  Serious: No
  Sender: FDA-Public Use
  Company Number: US-B.I. PHARMACEUTICALS,INC./RIDGEFIELD-2010-BP-04396BP

PATIENT
  Sex: Female

DRUGS (4)
  1. SPIRIVA [Suspect]
     Indication: CHRONIC OBSTRUCTIVE PULMONARY DISEASE
     Dosage: 18 MCG
     Route: 055
     Dates: start: 20100306, end: 20100411
  2. LISINOPRIL [Concomitant]
     Indication: HYPERTENSION
     Route: 048
     Dates: start: 20070101
  3. TIZANIDINE HCL [Concomitant]
     Indication: WHIPLASH INJURY
     Route: 048
     Dates: start: 20100101
  4. TIZANIDINE HCL [Concomitant]
     Indication: ROAD TRAFFIC ACCIDENT

REACTIONS (2)
  - CHEST DISCOMFORT [None]
  - SENSATION OF HEAVINESS [None]
